FAERS Safety Report 14126530 (Version 1)
Quarter: 2017Q4

REPORT INFORMATION
  Report Type: Spontaneous
  Country: US (occurrence: US)
  Receive Date: 20171025
  Receipt Date: 20171025
  Transmission Date: 20180321
  Serious: Yes (Other)
  Sender: FDA-Public Use
  Company Number: US-BAUSCH-BL-2017-005703

PATIENT
  Age: 60 Year
  Sex: Male

DRUGS (6)
  1. ATIVAN [Suspect]
     Active Substance: LORAZEPAM
     Indication: SEIZURE
     Route: 065
     Dates: start: 20160930
  2. VALIUM [Concomitant]
     Active Substance: DIAZEPAM
     Indication: SEIZURE
  3. ATIVAN [Suspect]
     Active Substance: LORAZEPAM
     Route: 065
  4. KEPPRA [Concomitant]
     Active Substance: LEVETIRACETAM
     Indication: ALCOHOL WITHDRAWAL SYNDROME
  5. KEPPRA [Concomitant]
     Active Substance: LEVETIRACETAM
     Indication: SEIZURE
     Route: 042
  6. PHENOBARBITAL. [Concomitant]
     Active Substance: PHENOBARBITAL
     Indication: ALCOHOL WITHDRAWAL SYNDROME

REACTIONS (1)
  - Agitation [Recovered/Resolved]

NARRATIVE: CASE EVENT DATE: 20160930
